FAERS Safety Report 19174995 (Version 1)
Quarter: 2021Q2

REPORT INFORMATION
  Report Type: Spontaneous
  Country: US (occurrence: US)
  Receive Date: 20210423
  Receipt Date: 20210423
  Transmission Date: 20210717
  Serious: No
  Sender: FDA-Public Use
  Company Number: US-TAKEDA-2021TUS025319

PATIENT
  Sex: Female
  Weight: 113 kg

DRUGS (1)
  1. DEXILANT [Suspect]
     Active Substance: DEXLANSOPRAZOLE
     Indication: GASTROOESOPHAGEAL REFLUX DISEASE
     Dosage: 30 MILLIGRAM, QD
     Route: 065

REACTIONS (5)
  - Abdominal pain upper [Unknown]
  - Therapy interrupted [Unknown]
  - Chest pain [Unknown]
  - Anxiety [Unknown]
  - Gastrooesophageal reflux disease [Unknown]
